FAERS Safety Report 8338193-6 (Version None)
Quarter: 2012Q2

REPORT INFORMATION
  Report Type: 
  Country: None (occurrence: None)
  Receive Date: 20120504
  Receipt Date: 20120426
  Transmission Date: 20120825
  Serious: Yes (Other)
  Sender: FDA-Public Use
  Company Number: JP-VERTEX PHARMACEUTICALS INC.-AE-2012-004045

PATIENT
  Age: 61 Year
  Sex: Female

DRUGS (12)
  1. REBETOL [Concomitant]
     Route: 048
     Dates: start: 20120314
  2. PEG-INTRON [Concomitant]
     Route: 051
     Dates: start: 20120222, end: 20120222
  3. PEG-INTRON [Concomitant]
     Route: 051
     Dates: start: 20120314
  4. ACETAMINOPHEN [Concomitant]
     Dates: start: 20120201
  5. PRIMPERAN TAB [Concomitant]
     Dates: start: 20120201
  6. REBETOL [Concomitant]
     Indication: HEPATITIS C
     Route: 048
     Dates: start: 20120201, end: 20120221
  7. PEG-INTRON [Concomitant]
     Route: 051
     Dates: start: 20120215, end: 20120216
  8. TELAVIC (TELAPREVIR) [Suspect]
     Indication: HEPATITIS C
     Route: 048
     Dates: start: 20120201, end: 20120307
  9. PEG-INTRON [Concomitant]
     Indication: HEPATITIS C
     Route: 051
     Dates: start: 20120201, end: 20120208
  10. MUCOSTA [Concomitant]
     Route: 048
  11. REBETOL [Concomitant]
     Route: 048
     Dates: start: 20120222, end: 20120307
  12. PEG-INTRON [Concomitant]
     Route: 051
     Dates: start: 20120229, end: 20120229

REACTIONS (2)
  - WHITE BLOOD CELL COUNT DECREASED [None]
  - ERYTHEMA MULTIFORME [None]
